FAERS Safety Report 21381479 (Version 1)
Quarter: 2022Q3

REPORT INFORMATION
  Report Type: Spontaneous
  Country: PT (occurrence: PT)
  Receive Date: 20220927
  Receipt Date: 20220927
  Transmission Date: 20221027
  Serious: Yes (Other)
  Sender: FDA-Public Use
  Company Number: None

PATIENT
  Age: 56 Year
  Sex: Female

DRUGS (12)
  1. ROCURONIUM BROMIDE [Suspect]
     Active Substance: ROCURONIUM BROMIDE
     Indication: Neurosurgery
     Dosage: UNKNOWN
     Route: 065
     Dates: start: 20200717
  2. CEFAZOLIN [Suspect]
     Active Substance: CEFAZOLIN
     Indication: Neurosurgery
     Dosage: UNKNOWN
     Route: 065
     Dates: start: 20200717
  3. FENTANYL [Suspect]
     Active Substance: FENTANYL
     Indication: Neurosurgery
     Dosage: UNKNOWN
     Route: 065
     Dates: start: 20200717
  4. PROPOFOL [Suspect]
     Active Substance: PROPOFOL
     Indication: Neurosurgery
     Dosage: UNKNOWN
     Route: 065
     Dates: start: 20200717
  5. HYDROCORTISONE [Suspect]
     Active Substance: HYDROCORTISONE
     Indication: Neurosurgery
     Dosage: UNKNOWN
     Route: 065
     Dates: start: 20200717
  6. DEXAMETHASONE [Suspect]
     Active Substance: DEXAMETHASONE
     Indication: Neurosurgery
     Dosage: UNKNOWN
     Route: 065
     Dates: start: 20200717
  7. BACLOFEN [Concomitant]
     Active Substance: BACLOFEN
     Indication: Product used for unknown indication
     Dosage: UNKNOWN
     Route: 065
  8. LISINOPRIL [Concomitant]
     Active Substance: LISINOPRIL
     Indication: Product used for unknown indication
     Dosage: UNKNOWN
     Route: 065
  9. SIMVASTATIN [Concomitant]
     Active Substance: SIMVASTATIN
     Indication: Product used for unknown indication
     Dosage: UNKNOWN
     Route: 065
  10. LORAZEPAM [Concomitant]
     Active Substance: LORAZEPAM
     Indication: Product used for unknown indication
     Dosage: UNKNOWN
     Route: 065
  11. LERCANIDIPINE [Concomitant]
     Active Substance: LERCANIDIPINE
     Indication: Product used for unknown indication
     Dosage: UNKNOWN
     Route: 065
  12. AMITRIPTYLINE [Concomitant]
     Active Substance: AMITRIPTYLINE
     Indication: Product used for unknown indication
     Dosage: UNKNOWN
     Route: 065

REACTIONS (3)
  - Lip oedema [Recovered/Resolved]
  - Tachycardia [Recovered/Resolved]
  - Hypotension [Recovered/Resolved]

NARRATIVE: CASE EVENT DATE: 20200717
